FAERS Safety Report 4273146-9 (Version None)
Quarter: 2004Q1

REPORT INFORMATION
  Report Type: 
  Country: None (occurrence: None)
  Receive Date: 20040116
  Receipt Date: 20040109
  Transmission Date: 20041129
  Serious: Yes (Hospitalization)
  Sender: FDA-Public Use
  Company Number: FR-GLAXOSMITHKLINE-B0319378A

PATIENT
  Age: 61 Year
  Sex: Male

DRUGS (2)
  1. AUGMENTIN [Suspect]
     Indication: PNEUMONIA PNEUMOCOCCAL
     Dosage: 6G PER DAY
     Route: 042
     Dates: start: 20031015, end: 20031027
  2. CLAFORAN [Concomitant]
     Indication: URINARY TRACT INFECTION
     Dates: start: 20031102, end: 20031109

REACTIONS (4)
  - CLOSTRIDIAL INFECTION [None]
  - CLOSTRIDIUM COLITIS [None]
  - DIARRHOEA [None]
  - URINARY TRACT INFECTION [None]
